FAERS Safety Report 4870579-4 (Version None)
Quarter: 2006Q1

REPORT INFORMATION
  Report Type: 
  Country: None (occurrence: None)
  Receive Date: 20060103
  Receipt Date: 20051228
  Transmission Date: 20060701
  Serious: Yes (Life-Threatening)
  Sender: FDA-Public Use
  Company Number: FR-AVENTIS-200514387FR

PATIENT
  Age: 47 Year
  Sex: Female

DRUGS (4)
  1. FLAGYL [Suspect]
     Indication: PERITONITIS
     Route: 042
     Dates: end: 20050422
  2. TRACRIUM [Suspect]
     Indication: GENERAL ANAESTHESIA
     Route: 042
     Dates: end: 20050422
  3. SUFENTA [Suspect]
     Indication: GENERAL ANAESTHESIA
     Route: 042
     Dates: end: 20050422
  4. PROPOFOL [Suspect]
     Indication: GENERAL ANAESTHESIA
     Route: 042
     Dates: end: 20050422

REACTIONS (4)
  - ANAPHYLACTOID REACTION [None]
  - ERYTHEMA [None]
  - OXYGEN SATURATION DECREASED [None]
  - SHOCK [None]
